FAERS Safety Report 7760464-2 (Version None)
Quarter: 2011Q3

REPORT INFORMATION
  Report Type: 
  Country: None (occurrence: None)
  Receive Date: 20110919
  Receipt Date: 20110907
  Transmission Date: 20111222
  Serious: Yes (Death)
  Sender: FDA-Public Use
  Company Number: JP-GENZYME-THYM-1002143

PATIENT
  Sex: Male
  Weight: 22 kg

DRUGS (79)
  1. SULFAMETHOPRIM [Concomitant]
     Indication: PRODUCT USED FOR UNKNOWN INDICATION
     Dosage: UNK
     Dates: start: 20090216, end: 20090217
  2. URSODIOL [Concomitant]
     Indication: PROPHYLAXIS
     Dosage: 100 MG, BID
     Dates: start: 20090218, end: 20090331
  3. MENATETRENONE [Concomitant]
     Dosage: 10 MG, UNK
     Dates: start: 20090303, end: 20090304
  4. MIXED AMINO ACID CARBOHYDRATE ELECTROLYTE VITAMIN COMBINED DRUG [Concomitant]
     Indication: PRODUCT USED FOR UNKNOWN INDICATION
     Dosage: 1103 ML, UNK
     Dates: start: 20090225, end: 20090331
  5. FILGRASTIM [Concomitant]
     Dosage: 300 MCG, UNK
     Dates: start: 20090328, end: 20090328
  6. PREDNISOLONE SODIUM SUCCINATE INJ [Concomitant]
     Indication: PRODUCT USED FOR UNKNOWN INDICATION
     Dosage: 10 MG, UNK
     Dates: start: 20090312, end: 20090317
  7. THYMOGLOBULIN [Suspect]
     Indication: BONE MARROW CONDITIONING REGIMEN
     Dosage: 50 MG, QD
     Route: 042
     Dates: start: 20090220, end: 20090223
  8. MEQUITAZINE [Concomitant]
     Indication: PRODUCT USED FOR UNKNOWN INDICATION
     Dosage: 3 MG, BID
     Dates: start: 20090216, end: 20090331
  9. CANDESARTAN CILEXETIL [Concomitant]
     Dosage: 4 MG, QD
     Dates: start: 20090331, end: 20090331
  10. HEPARIN [Concomitant]
     Indication: PRODUCT USED FOR UNKNOWN INDICATION
     Dosage: UNK
     Dates: start: 20090305, end: 20090305
  11. TACROLIMUS [Concomitant]
     Indication: PRODUCT USED FOR UNKNOWN INDICATION
     Dosage: UNK
     Dates: start: 20090306, end: 20090306
  12. MONTELUKAST SODIUM [Concomitant]
     Indication: PRODUCT USED FOR UNKNOWN INDICATION
     Dosage: 5 MG, QD
     Dates: start: 20090318, end: 20090331
  13. PROCATEROL HCL [Concomitant]
     Indication: PRODUCT USED FOR UNKNOWN INDICATION
     Dosage: 0.3 ML, BID
     Dates: start: 20090318, end: 20090324
  14. CHLORPHENIRAMINE MALEATE [Concomitant]
     Dosage: 0.5 ML, UNK
     Dates: start: 20090308, end: 20090308
  15. MENATETRENONE [Concomitant]
     Dosage: 10 MG, UNK
     Dates: start: 20090309, end: 20090311
  16. HAPTOGLOBINS [Concomitant]
     Indication: PRODUCT USED FOR UNKNOWN INDICATION
     Dosage: 2000 U, UNK
     Dates: start: 20090225, end: 20090225
  17. FILGRASTIM [Concomitant]
     Indication: PRODUCT USED FOR UNKNOWN INDICATION
     Dosage: 300 MCG, UNK
     Dates: start: 20090302, end: 20090323
  18. IMMUNOGLOBULIN HUMAN NORMAL [Concomitant]
     Dosage: 2.5 MG, UNK
     Dates: start: 20090305, end: 20090305
  19. VORICONAZOLE [Concomitant]
     Indication: PRODUCT USED FOR UNKNOWN INDICATION
     Dosage: 50 MG, BID
     Dates: start: 20090216, end: 20090302
  20. CLARITHROMYCIN [Concomitant]
     Indication: PRODUCT USED FOR UNKNOWN INDICATION
     Dosage: 80 MG, TID
     Dates: start: 20090216, end: 20090221
  21. FLURBIPROFEN [Concomitant]
     Dosage: UNK
     Dates: start: 20090325, end: 20090325
  22. SODIUM PICOSULFATE [Concomitant]
     Indication: CONSTIPATION
     Dosage: 10 ML, QD
     Dates: start: 20090222, end: 20090222
  23. GLYCERIN [Concomitant]
     Indication: CONSTIPATION
     Dosage: 40 ML, QD
     Dates: start: 20090222, end: 20090224
  24. BETAMETHASON [Concomitant]
     Indication: PRODUCT USED FOR UNKNOWN INDICATION
     Dosage: UNK
     Dates: start: 20090306, end: 20090306
  25. BUDESONIDE [Concomitant]
     Indication: PRODUCT USED FOR UNKNOWN INDICATION
     Dosage: 0.25 MG, BID
     Dates: start: 20090318, end: 20090324
  26. CHLORPHENIRAMINE MALEATE [Concomitant]
     Indication: PREMEDICATION
     Dosage: 1 ML, QD
     Dates: start: 20090220, end: 20090225
  27. CHLORPHENIRAMINE MALEATE [Concomitant]
     Dosage: 0.5 ML, UNK
     Dates: start: 20090314, end: 20090314
  28. CHLORPHENIRAMINE MALEATE [Concomitant]
     Dosage: 0.5 ML, UNK
     Dates: start: 20090320, end: 20090320
  29. RAMOSETRON HYDROCHLORIDE [Concomitant]
     Indication: PRODUCT USED FOR UNKNOWN INDICATION
     Dosage: 0.3 MG, UNK
     Dates: start: 20090220, end: 20090220
  30. MENATETRENONE [Concomitant]
     Dosage: 10 MG, UNK
     Dates: start: 20090323, end: 20090324
  31. METHOTREXATE [Concomitant]
     Dosage: 8.5 MG, UNK
     Dates: start: 20090228, end: 20090228
  32. MEROPENEM [Concomitant]
     Indication: PRODUCT USED FOR UNKNOWN INDICATION
     Dosage: UNK
     Dates: start: 20090311, end: 20090323
  33. MINOCYCLINE HYDROCHLORIDE [Concomitant]
     Indication: PRODUCT USED FOR UNKNOWN INDICATION
     Dosage: UNK
     Dates: start: 20090317, end: 20090323
  34. TACROLIMUS [Concomitant]
     Dosage: UNK
     Dates: start: 20090313, end: 20090313
  35. LOPERAMIDE HCL [Concomitant]
     Indication: PRODUCT USED FOR UNKNOWN INDICATION
     Dosage: UNK
     Dates: start: 20090320, end: 20090322
  36. FAMOTIDINE [Concomitant]
     Dosage: 10 MG, UNK
     Dates: start: 20090228, end: 20090323
  37. HEPARIN [Concomitant]
     Indication: PROPHYLAXIS
     Dosage: UNK
     Dates: start: 20090218, end: 20090331
  38. CHLORPHENIRAMINE MALEATE [Concomitant]
     Dosage: UNK
     Dates: start: 20090318, end: 20090318
  39. MENATETRENONE [Concomitant]
     Dosage: 10 MG, UNK
     Dates: start: 20090316, end: 20090318
  40. FOSCARNET SODIUM [Concomitant]
     Indication: PRODUCT USED FOR UNKNOWN INDICATION
     Dosage: 7.68 MG, UNK
     Dates: start: 20090311, end: 20090331
  41. POLYMYXIN B SULFATE [Concomitant]
     Indication: PRODUCT USED FOR UNKNOWN INDICATION
     Dosage: UNK
     Dates: start: 20090216, end: 20090324
  42. FLURBIPROFEN [Concomitant]
     Indication: PRODUCT USED FOR UNKNOWN INDICATION
     Dosage: UNK
     Dates: start: 20090220, end: 20090220
  43. CANDESARTAN CILEXETIL [Concomitant]
     Indication: PRODUCT USED FOR UNKNOWN INDICATION
     Dosage: 4 MG, QD
     Dates: start: 20090225, end: 20090331
  44. TACROLIMUS [Concomitant]
     Dosage: 0.5 MG, BID
     Dates: start: 20090330, end: 20090331
  45. TACROLIMUS [Concomitant]
     Dosage: 60 MG, QD
     Dates: start: 20090224, end: 20090327
  46. PREDNISOLONE [Concomitant]
     Dosage: 25 MG, TID
     Dates: start: 20090330, end: 20090331
  47. CHLORPHENIRAMINE MALEATE [Concomitant]
     Dosage: 1.5 ML, QD
     Dates: start: 20090305, end: 20090306
  48. CHLORPHENIRAMINE MALEATE [Concomitant]
     Dosage: 0.5 ML, UNK
     Dates: start: 20090322, end: 20090322
  49. TEICOPLANIN [Concomitant]
     Indication: PRODUCT USED FOR UNKNOWN INDICATION
     Dosage: 100 MG, UNK
     Dates: start: 20090220, end: 20090317
  50. MENATETRENONE [Concomitant]
     Indication: PRODUCT USED FOR UNKNOWN INDICATION
     Dosage: 10 MG, UNK
     Dates: start: 20090224, end: 20090225
  51. HYDROCORTISONE SODIUM SUCCINATE [Concomitant]
     Indication: PRODUCT USED FOR UNKNOWN INDICATION
     Dosage: 100 MG, UNK
     Dates: start: 20090225, end: 20090225
  52. METHOTREXATE [Concomitant]
     Dosage: 8.5 MG, UNK
     Dates: start: 20090303, end: 20090303
  53. AMBROXOL HYDROCHLORIDE [Concomitant]
     Indication: PRODUCT USED FOR UNKNOWN INDICATION
     Dosage: 15 MG, BID
     Dates: start: 20090216, end: 20090331
  54. FAMOTIDINE [Concomitant]
     Indication: PRODUCT USED FOR UNKNOWN INDICATION
     Dosage: UNK
     Dates: start: 20090324, end: 20090331
  55. CEFOZOPRAN HYDROCHLORIDE [Concomitant]
     Indication: PRODUCT USED FOR UNKNOWN INDICATION
     Dosage: UNK
     Dates: start: 20090217, end: 20090310
  56. FLUDARABINE PHOSPHATE [Concomitant]
     Indication: PRODUCT USED FOR UNKNOWN INDICATION
     Dosage: 26 MG, UNK
     Dates: start: 20090218, end: 20090223
  57. ACYCLOVIR [Concomitant]
     Indication: INFECTION PROPHYLAXIS
     Dosage: 250 MG, QD
     Dates: start: 20090224, end: 20090311
  58. HYDROCORTISONE SODIUM SUCCINATE [Concomitant]
     Dosage: 100 MG, UNK
     Dates: start: 20090306, end: 20090306
  59. METHOTREXATE [Concomitant]
     Indication: PROPHYLAXIS AGAINST GRAFT VERSUS HOST DISEASE
     Dosage: 13 MG, UNK
     Dates: start: 20090226, end: 20090226
  60. METOCLOPRAMIDE [Concomitant]
     Indication: PRODUCT USED FOR UNKNOWN INDICATION
     Dosage: 5 MG, UNK
     Dates: start: 20090227, end: 20090227
  61. IMMUNOGLOBULIN HUMAN NORMAL [Concomitant]
     Indication: PRODUCT USED FOR UNKNOWN INDICATION
     Dosage: 2.5 MG, UNK
     Dates: start: 20090312, end: 20090312
  62. PREDNISOLONE SODIUM SUCCINATE INJ [Concomitant]
     Dosage: UNK
     Dates: start: 20090317, end: 20090324
  63. FREEZE-DRIED ION EXCHANGE RESI [Concomitant]
     Indication: PRODUCT USED FOR UNKNOWN INDICATION
     Dosage: 2.5 MG, QD
     Dates: start: 20090331, end: 20090331
  64. SODIUM PICOSULFATE [Concomitant]
     Dosage: 10 ML, QD
     Dates: start: 20090305, end: 20090305
  65. HEPARIN [Concomitant]
     Dosage: UNK
     Dates: start: 20090310, end: 20090310
  66. KETOPROFEN [Concomitant]
     Indication: PRODUCT USED FOR UNKNOWN INDICATION
     Dosage: UNK
     Dates: start: 20090314, end: 20090314
  67. GRANISETRON HYDROCHLORIDE [Concomitant]
     Indication: PRODUCT USED FOR UNKNOWN INDICATION
     Dosage: 3 MG, BID
     Dates: start: 20090218, end: 20090225
  68. CHLORPHENIRAMINE MALEATE [Concomitant]
     Dosage: 0.5 ML, UNK
     Dates: start: 20090311, end: 20090311
  69. MANGANESE CHLORIDE ZINC SULFATE COMBINED DRUG [Concomitant]
     Indication: PRODUCT USED FOR UNKNOWN INDICATION
     Dosage: 2 ML, UNK
     Dates: start: 20090224, end: 20090331
  70. VORICONAZOLE [Concomitant]
     Dosage: 50 MG, BID
     Dates: start: 20090304, end: 20090331
  71. CLARITHROMYCIN [Concomitant]
     Dosage: 80 MG, TID
     Dates: start: 20090223, end: 20090223
  72. MIDAZOLAM HCL [Concomitant]
     Indication: PRODUCT USED FOR UNKNOWN INDICATION
     Dosage: 3 ML, QD
     Dates: start: 20090216, end: 20090216
  73. HEPARIN [Concomitant]
     Dosage: UNK
     Dates: start: 20090313, end: 20090313
  74. TACROLIMUS [Concomitant]
     Dosage: 1 MG, BID
     Dates: start: 20090328, end: 20090331
  75. PREDNISOLONE [Concomitant]
     Indication: PRODUCT USED FOR UNKNOWN INDICATION
     Dosage: 15 MG, TID
     Dates: start: 20090325, end: 20090330
  76. METHYLPREDNISOLONE SODIUM SUCCINATE [Concomitant]
     Indication: PREMEDICATION
     Dosage: 20 MG, QD
     Dates: start: 20090220, end: 20090224
  77. CHLORPHENIRAMINE MALEATE [Concomitant]
     Dosage: 0.5 ML, UNK
     Dates: start: 20090316, end: 20090316
  78. MELPHALAN HYDROCHLORIDE [Concomitant]
     Indication: PRODUCT USED FOR UNKNOWN INDICATION
     Dosage: 60 MG, QD
     Dates: start: 20090222, end: 20090223
  79. METHOTREXATE [Concomitant]
     Dosage: 8.5 MG, UNK
     Dates: start: 20090308, end: 20090308

REACTIONS (1)
  - EPSTEIN-BARR VIRUS ASSOCIATED LYMPHOPROLIFERATIVE DISORDER [None]
